FAERS Safety Report 9548007 (Version 1)
Quarter: 2013Q3

REPORT INFORMATION
  Report Type: Spontaneous
  Country: US (occurrence: None)
  Receive Date: 20130730
  Receipt Date: 20130730
  Transmission Date: 20140515
  Serious: Yes (Other)
  Sender: FDA-Public Use
  Company Number: USEN-935NJ6

PATIENT
  Sex: Male

DRUGS (1)
  1. AVAGARD [Suspect]
     Dates: start: 20121219

REACTIONS (2)
  - Eye irrigation [None]
  - Foreign body in eye [None]
